FAERS Safety Report 21321891 (Version 1)
Quarter: 2022Q3

REPORT INFORMATION
  Report Type: Spontaneous
  Country: US (occurrence: US)
  Receive Date: 20220912
  Receipt Date: 20220912
  Transmission Date: 20221026
  Serious: No
  Sender: FDA-Public Use
  Company Number: US-ALLERGAN-2130336US

PATIENT
  Sex: Female
  Weight: 65.76 kg

DRUGS (1)
  1. ANDRODERM [Suspect]
     Active Substance: TESTOSTERONE
     Indication: In vitro fertilisation
     Dosage: UNK
     Dates: start: 20210821

REACTIONS (4)
  - Off label use [Unknown]
  - Feeling cold [Unknown]
  - Product adhesion issue [Unknown]
  - Product complaint [Unknown]
